FAERS Safety Report 15227836 (Version 1)
Quarter: 2018Q3

REPORT INFORMATION
  Report Type: Spontaneous
  Country: US (occurrence: US)
  Receive Date: 20180801
  Receipt Date: 20180801
  Transmission Date: 20181010
  Serious: Yes (Other)
  Sender: FDA-Public Use
  Company Number: US-ASTRAZENECA-2018SE95752

PATIENT
  Age: 779 Month
  Sex: Female
  Weight: 75 kg

DRUGS (6)
  1. NORVASC [Concomitant]
     Active Substance: AMLODIPINE BESYLATE
     Indication: HYPERTENSION
     Dosage: DAILY
     Route: 048
     Dates: start: 201606
  2. ASPIRIN. [Concomitant]
     Active Substance: ASPIRIN
     Dosage: 81.0MG UNKNOWN
  3. VITAMIN B NOS [Concomitant]
     Active Substance: VITAMIN B
  4. METOPROLOL SUCCINATE. [Suspect]
     Active Substance: METOPROLOL SUCCINATE
     Route: 048
  5. CRESTOR [Suspect]
     Active Substance: ROSUVASTATIN CALCIUM
     Route: 048
  6. VITAMIN D [Concomitant]
     Active Substance: CHOLECALCIFEROL
     Route: 048

REACTIONS (5)
  - Atrial fibrillation [Unknown]
  - Calcinosis [Unknown]
  - Emphysema [Unknown]
  - Hypertension [Unknown]
  - Breast cancer [Unknown]

NARRATIVE: CASE EVENT DATE: 201107
